FAERS Safety Report 4342602-7 (Version None)
Quarter: 2004Q2

REPORT INFORMATION
  Report Type: 
  Country: None (occurrence: None)
  Receive Date: 20040416
  Receipt Date: 20040331
  Transmission Date: 20050107
  Serious: Yes (Congenital Anomaly)
  Sender: FDA-Public Use
  Company Number: 2004SE01814

PATIENT
  Age: 20 Year
  Sex: Female
  Weight: 63 kg

DRUGS (1)
  1. NEXIUM [Suspect]
     Indication: GASTRITIS
     Dosage: 40 MG DAILY PO
     Route: 048
     Dates: start: 20031126, end: 20031230

REACTIONS (4)
  - ABORTION INDUCED [None]
  - COMPLICATIONS OF MATERNAL EXPOSURE TO THERAPEUTIC DRUGS [None]
  - HOLOPROSENCEPHALY [None]
  - MATERNAL DRUGS AFFECTING FOETUS [None]
